FAERS Safety Report 23620373 (Version 1)
Quarter: 2024Q1

REPORT INFORMATION
  Report Type: Spontaneous
  Country: BR (occurrence: BR)
  Receive Date: 20240312
  Receipt Date: 20240312
  Transmission Date: 20240410
  Serious: Yes (Other)
  Sender: FDA-Public Use
  Company Number: BR-BRA-SPO/BRA/24/0003873

PATIENT
  Age: 68 Year
  Sex: Female

DRUGS (4)
  1. FULVESTRANT [Suspect]
     Active Substance: FULVESTRANT
     Indication: Product used for unknown indication
     Dosage: EACH SIDE OF THE BUTTOCK; 50MG/ML PREFILLED SYRINGE 5ML - 02 PREFILLED SYRINGES
     Route: 030
     Dates: start: 20240222
  2. FULVESTRANT [Suspect]
     Active Substance: FULVESTRANT
     Dosage: EACH SIDE OF THE BUTTOCK
     Route: 030
     Dates: start: 20230222
  3. SERETIDE [Concomitant]
     Active Substance: FLUTICASONE PROPIONATE\SALMETEROL XINAFOATE
     Indication: Product used for unknown indication
  4. PALBOCICLIB [Concomitant]
     Active Substance: PALBOCICLIB
     Indication: Product used for unknown indication

REACTIONS (2)
  - Injection site haematoma [Not Recovered/Not Resolved]
  - Injection site ulcer [Not Recovered/Not Resolved]

NARRATIVE: CASE EVENT DATE: 20240225
